FAERS Safety Report 19115257 (Version 3)
Quarter: 2021Q2

REPORT INFORMATION
  Report Type: Spontaneous
  Country: US (occurrence: US)
  Receive Date: 20210409
  Receipt Date: 20210602
  Transmission Date: 20210717
  Serious: Yes (Hospitalization)
  Sender: FDA-Public Use
  Company Number: US-BRAINTREE LABORATORIES, INC.-2021BTE00211

PATIENT
  Age: 69 Year
  Sex: Male
  Weight: 75.8 kg

DRUGS (2)
  1. SUPREP BOWEL PREP [Suspect]
     Active Substance: MAGNESIUM SULFATE\POTASSIUM SULFATE\SODIUM SULFATE
     Indication: COLONOSCOPY
     Dosage: 2 X 6 OZ. BOTTLE, 1X
     Route: 048
     Dates: start: 20210318, end: 20210319
  2. ACYCLOVIR. [Concomitant]
     Active Substance: ACYCLOVIR

REACTIONS (10)
  - Small intestinal obstruction [Recovered/Resolved]
  - Abdominal pain lower [Recovered/Resolved]
  - Colonic abscess [Recovered/Resolved]
  - Ileus [Recovered/Resolved]
  - Bladder pain [Recovering/Resolving]
  - Diverticulitis intestinal perforated [Recovering/Resolving]
  - Procedural intestinal perforation [Recovering/Resolving]
  - Hypokalaemia [Recovered/Resolved]
  - Vomiting [Recovered/Resolved]
  - Nausea [Recovering/Resolving]

NARRATIVE: CASE EVENT DATE: 2021
